FAERS Safety Report 8823181 (Version 1)
Quarter: 2012Q4

REPORT INFORMATION
  Report Type: 
  Country: FR (occurrence: FR)
  Receive Date: 20121003
  Receipt Date: 20121003
  Transmission Date: 20130627
  Serious: Yes (Hospitalization)
  Sender: FDA-Public Use
  Company Number: FR-PFIZER INC-2012238456

PATIENT
  Age: 85 Year
  Sex: Female

DRUGS (7)
  1. TRIATEC [Suspect]
     Indication: HYPERTENSION
     Dosage: 5 mg, 1x/day
     Route: 048
     Dates: end: 20120907
  2. ALDACTONE [Suspect]
     Indication: HYPERTENSION
     Dosage: 25 mg, 2x/day
     Route: 048
     Dates: end: 20120903
  3. TEMERIT [Suspect]
     Indication: HYPERTENSION
     Dosage: 5 mg, 1x/day
     Route: 048
     Dates: end: 20120827
  4. LASILIX SPECIAL [Concomitant]
     Indication: HYPERTENSION
     Dosage: 250 mg/ 25ml ampoule, 1x/day
     Route: 042
  5. NORSET [Concomitant]
     Indication: COGNITIVE DISORDER
     Dosage: 1 DF, 1x/day
     Route: 048
  6. PREVISCAN [Concomitant]
     Indication: ATRIAL FIBRILLATION
     Dosage: 15 mg, 1x/day
     Route: 048
  7. DIFFU K [Concomitant]
     Dosage: 1 DF, 1x/day
     Route: 048
     Dates: end: 20120826

REACTIONS (8)
  - Malaise [Recovered/Resolved]
  - Fall [Recovered/Resolved]
  - Hypotension [Recovered/Resolved]
  - Loss of consciousness [Unknown]
  - Chills [Unknown]
  - Tremor [Unknown]
  - Renal failure chronic [Unknown]
  - International normalised ratio increased [Unknown]
